FAERS Safety Report 6355320-0 (Version None)
Quarter: 2009Q3

REPORT INFORMATION
  Report Type: 
  Country: None (occurrence: None)
  Receive Date: 20090914
  Receipt Date: 20090908
  Transmission Date: 20100115
  Serious: Yes (Death, Hospitalization)
  Sender: FDA-Public Use
  Company Number: US-GILEAD-2009-0024043

PATIENT
  Sex: Female
  Weight: 151.64 kg

DRUGS (4)
  1. LETAIRIS [Suspect]
     Indication: PULMONARY ARTERIAL HYPERTENSION
     Route: 048
     Dates: start: 20090702, end: 20090713
  2. ZIAC [Concomitant]
  3. ALLOPURINOL [Concomitant]
  4. CELEXA [Concomitant]

REACTIONS (5)
  - CELLULITIS [None]
  - CONFUSIONAL STATE [None]
  - COR PULMONALE [None]
  - PULMONARY ARTERIAL HYPERTENSION [None]
  - RENAL FAILURE ACUTE [None]
